FAERS Safety Report 20389789 (Version 1)
Quarter: 2022Q1

REPORT INFORMATION
  Report Type: Spontaneous
  Country: CA (occurrence: CA)
  Receive Date: 20220128
  Receipt Date: 20220128
  Transmission Date: 20220424
  Serious: Yes (Other)
  Sender: FDA-Public Use
  Company Number: CA-NOVOPROD-847611

PATIENT
  Sex: Female
  Weight: 84.09 kg

DRUGS (5)
  1. OZEMPIC [Suspect]
     Active Substance: SEMAGLUTIDE
     Indication: Type 2 diabetes mellitus
     Dosage: STOPPED AT 5 WEEKS GESTATIONAL AGE (GA)
     Route: 065
  2. BASAGLAR [Suspect]
     Active Substance: INSULIN GLARGINE
     Indication: Product used for unknown indication
     Dosage: STARTED AT PREGANCY UNTIL 19 WEEKS GA
     Route: 065
  3. HUMALOG [Suspect]
     Active Substance: INSULIN LISPRO
     Indication: Type 2 diabetes mellitus
     Dosage: WAS ON DURING ALL PREGNANCY
     Route: 065
  4. INSULIN BEEF [Suspect]
     Active Substance: INSULIN BEEF
     Indication: Type 2 diabetes mellitus
     Dosage: UNTIL 13 WEEKS GA
     Route: 065
  5. ASPIRIN [Suspect]
     Active Substance: ASPIRIN
     Indication: Product used for unknown indication
     Dosage: UNTIL 13 WEEKS GA
     Route: 065

REACTIONS (5)
  - Vanishing twin syndrome [Unknown]
  - Polyhydramnios [Unknown]
  - Hypoglycaemia [Not Recovered/Not Resolved]
  - Product use issue [Unknown]
  - Maternal exposure during pregnancy [Recovered/Resolved]
